FAERS Safety Report 4647573-1 (Version None)
Quarter: 2005Q2

REPORT INFORMATION
  Report Type: 
  Country: None (occurrence: None)
  Receive Date: 20050426
  Receipt Date: 20050413
  Transmission Date: 20051028
  Serious: Yes (Other)
  Sender: FDA-Public Use
  Company Number: 2005059904

PATIENT
  Age: 32 Year
  Sex: Male

DRUGS (1)
  1. SULFASALAZINE [Suspect]
     Indication: SPONDYLITIS
     Dosage: 2000 MG (1000 MG, 2 IN 1 D), ORAL
     Route: 048
     Dates: start: 20050114, end: 20050205

REACTIONS (2)
  - DYSPNOEA [None]
  - URTICARIA [None]
